FAERS Safety Report 23113522 (Version 2)
Quarter: 2023Q4

REPORT INFORMATION
  Report Type: Report from Study
  Country: HU (occurrence: HU)
  Receive Date: 20231027
  Receipt Date: 20231114
  Transmission Date: 20240110
  Serious: Yes (Other)
  Sender: FDA-Public Use
  Company Number: HU-TAKEDA-2023TUS102552

PATIENT
  Age: 6 Year
  Sex: Male
  Weight: 17 kg

DRUGS (82)
  1. ADVATE [Suspect]
     Active Substance: ANTIHEMOPHILIC FACTOR, HUMAN RECOMBINANT
     Indication: Factor VIII deficiency
     Dosage: UNK
     Route: 042
     Dates: start: 20160128
  2. ADVATE [Suspect]
     Active Substance: ANTIHEMOPHILIC FACTOR, HUMAN RECOMBINANT
     Indication: Factor VIII deficiency
     Dosage: UNK
     Route: 042
     Dates: start: 20160128
  3. ADVATE [Suspect]
     Active Substance: ANTIHEMOPHILIC FACTOR, HUMAN RECOMBINANT
     Indication: Factor VIII deficiency
     Dosage: UNK
     Route: 042
     Dates: start: 20160128
  4. FERROUS SULFATE\SERINE [Concomitant]
     Active Substance: FERROUS SULFATE\SERINE
     Indication: Iron deficiency
     Dosage: 7 MILLIGRAM, QD
     Route: 065
     Dates: start: 20160215, end: 20160520
  5. AZITHROMYCIN [Concomitant]
     Active Substance: AZITHROMYCIN
     Indication: Oropharyngeal pain
     Dosage: 10 MILLILITER, QD
     Route: 065
     Dates: start: 20160616, end: 20160620
  6. AZITHROMYCIN [Concomitant]
     Active Substance: AZITHROMYCIN
     Indication: Cough
  7. METAMIZOLE SODIUM [Concomitant]
     Active Substance: METAMIZOLE SODIUM
     Indication: Pyrexia
     Dosage: 10 GTT DROPS, TID
     Route: 065
     Dates: start: 20160616, end: 20160620
  8. METAMIZOLE SODIUM [Concomitant]
     Active Substance: METAMIZOLE SODIUM
     Indication: Ear pain
     Dosage: 10 GTT DROPS, TID
     Route: 065
     Dates: start: 20170411, end: 20170415
  9. METAMIZOLE SODIUM [Concomitant]
     Active Substance: METAMIZOLE SODIUM
     Indication: Headache
     Dosage: 15 GTT DROPS, TID
     Route: 065
     Dates: start: 20201225, end: 20201227
  10. METAMIZOLE SODIUM [Concomitant]
     Active Substance: METAMIZOLE SODIUM
     Dosage: 15 GTT DROPS, TID
     Route: 065
     Dates: start: 20220315, end: 20220318
  11. Fenistil junior [Concomitant]
     Indication: Cough
     Dosage: 15 GTT DROPS, TID
     Route: 065
     Dates: start: 20160910, end: 20160920
  12. Fenistil junior [Concomitant]
     Indication: Rhinitis
     Dosage: 15 GTT DROPS, TID
     Route: 065
     Dates: start: 20210130, end: 20210202
  13. CALCIUM GLUCONATE [Concomitant]
     Active Substance: CALCIUM GLUCONATE
     Indication: Cough
     Dosage: 2.5 MILLILITER, BID
     Route: 065
     Dates: start: 20160910, end: 20160920
  14. FLUIMUCIL [Concomitant]
     Active Substance: ACETYLCYSTEINE
     Indication: Cough
     Dosage: 5 MILLILITER, BID
     Route: 065
     Dates: start: 20160910, end: 20160920
  15. VITAMIN C [Concomitant]
     Active Substance: ASCORBIC ACID
     Indication: Cough
     Dosage: 500 MILLIGRAM, BID
     Route: 065
     Dates: start: 20160910, end: 20160920
  16. VITAMIN C [Concomitant]
     Active Substance: ASCORBIC ACID
     Indication: Ear pain
     Dosage: 10 GTT DROPS, QD
     Route: 065
     Dates: start: 20170304, end: 20170408
  17. VITAMIN C [Concomitant]
     Active Substance: ASCORBIC ACID
     Indication: Headache
     Dosage: 10 GTT DROPS, QD
     Route: 065
     Dates: start: 20180927, end: 20181002
  18. VITAMIN C [Concomitant]
     Active Substance: ASCORBIC ACID
     Indication: Oropharyngeal pain
     Dosage: 10 GTT DROPS, QD
     Route: 065
     Dates: start: 20201225, end: 20201227
  19. VITAMIN C [Concomitant]
     Active Substance: ASCORBIC ACID
     Dosage: 1 DOSAGE FORM, BID
     Route: 065
     Dates: start: 20210813, end: 20210819
  20. VITAMIN C [Concomitant]
     Active Substance: ASCORBIC ACID
     Dosage: 200 MILLIGRAM, BID
     Route: 065
     Dates: start: 20221006, end: 20221008
  21. VITAMIN C [Concomitant]
     Active Substance: ASCORBIC ACID
     Dosage: 500 MILLIGRAM, BID
     Route: 065
     Dates: start: 20221130, end: 20221211
  22. SUPRAX [Concomitant]
     Active Substance: CEFIXIME
     Indication: Cough
     Dosage: 5 MILLILITER, BID
     Route: 065
     Dates: start: 20160916, end: 20160920
  23. SUPRAX [Concomitant]
     Active Substance: CEFIXIME
     Indication: Oropharyngeal pain
     Dosage: 5 MILLILITER, BID
     Route: 065
     Dates: start: 20170413, end: 20170415
  24. SUPRAX [Concomitant]
     Active Substance: CEFIXIME
     Dosage: 7.5 MILLILITER, BID
     Route: 065
     Dates: start: 20181217, end: 20181220
  25. SUPRAX [Concomitant]
     Active Substance: CEFIXIME
     Dosage: 10 MILLILITER, QD
     Route: 065
     Dates: start: 20210813, end: 20210819
  26. SUPRAX [Concomitant]
     Active Substance: CEFIXIME
     Dosage: 5 MILLILITER, BID
     Route: 065
     Dates: start: 20221009, end: 20221011
  27. CILOXAN [Concomitant]
     Active Substance: CIPROFLOXACIN HYDROCHLORIDE
     Indication: Cough
     Dosage: 1 GTT DROPS, TID
     Route: 065
     Dates: start: 20160916, end: 20161020
  28. CILOXAN [Concomitant]
     Active Substance: CIPROFLOXACIN HYDROCHLORIDE
     Dosage: 3 GTT DROPS, TID
     Route: 065
     Dates: start: 20170411, end: 20170413
  29. BETADINE [Concomitant]
     Active Substance: POVIDONE-IODINE
     Indication: Mouth ulceration
     Dosage: 5 GTT DROPS, QD
     Route: 065
     Dates: start: 20161203, end: 20161207
  30. ACRIFLAVIN [Concomitant]
     Indication: Mouth ulceration
     Dosage: 5 GTT DROPS, BID
     Route: 065
     Dates: start: 20161207, end: 20161211
  31. AMOXICILLIN\CLAVULANATE POTASSIUM [Concomitant]
     Active Substance: AMOXICILLIN\CLAVULANATE POTASSIUM
     Indication: Dysuria
     Dosage: 5 MILLILITER, BID
     Route: 065
     Dates: start: 20170202, end: 20170207
  32. AMOXICILLIN\CLAVULANATE POTASSIUM [Concomitant]
     Active Substance: AMOXICILLIN\CLAVULANATE POTASSIUM
     Dosage: 5 MILLILITER, BID
     Route: 065
     Dates: start: 20180217, end: 20180220
  33. CEDAX [Concomitant]
     Active Substance: CEFTIBUTEN DIHYDRATE
     Indication: Ear pain
     Dosage: 5 MILLILITER, QD
     Route: 065
     Dates: start: 20170304, end: 20170308
  34. FENOTEROL HYDROBROMIDE\IPRATROPIUM BROMIDE [Concomitant]
     Active Substance: FENOTEROL HYDROBROMIDE\IPRATROPIUM BROMIDE
     Indication: Cough
     Dosage: 20 GTT DROPS, TID
     Route: 065
     Dates: start: 20170304, end: 20170408
  35. FENOTEROL HYDROBROMIDE\IPRATROPIUM BROMIDE [Concomitant]
     Active Substance: FENOTEROL HYDROBROMIDE\IPRATROPIUM BROMIDE
     Indication: Influenza
     Dosage: 20 GTT DROPS, TID
     Route: 065
     Dates: start: 20171123, end: 20171203
  36. FENOTEROL HYDROBROMIDE\IPRATROPIUM BROMIDE [Concomitant]
     Active Substance: FENOTEROL HYDROBROMIDE\IPRATROPIUM BROMIDE
     Dosage: 20 GTT DROPS, TID
     Route: 065
     Dates: start: 20180209, end: 20180219
  37. NEOMYCIN [Concomitant]
     Active Substance: NEOMYCIN
     Indication: Ear pain
     Dosage: 1 GTT DROPS, TID
     Route: 065
     Dates: start: 20170304, end: 20170408
  38. NEOMYCIN [Concomitant]
     Active Substance: NEOMYCIN
     Indication: Breath sounds
     Dosage: UNK
     Route: 065
     Dates: start: 20200722, end: 20200725
  39. NEOMYCIN [Concomitant]
     Active Substance: NEOMYCIN
     Indication: Sinusitis
     Dosage: UNK, TID
     Route: 065
     Dates: start: 20210831, end: 20210912
  40. AMBROXOL HYDROCHLORIDE [Concomitant]
     Active Substance: AMBROXOL HYDROCHLORIDE
     Indication: Cough
     Dosage: 5 MILLILITER, BID
     Route: 065
     Dates: start: 20170304, end: 20170408
  41. AMBROXOL HYDROCHLORIDE [Concomitant]
     Active Substance: AMBROXOL HYDROCHLORIDE
     Indication: Oropharyngeal pain
     Dosage: 5 MILLILITER, BID
     Route: 065
     Dates: start: 20170411, end: 20170413
  42. AMBROXOL HYDROCHLORIDE [Concomitant]
     Active Substance: AMBROXOL HYDROCHLORIDE
     Indication: Ear pain
     Dosage: 5 MILLILITER, BID
     Route: 065
     Dates: start: 20180209, end: 20180219
  43. AMBROXOL HYDROCHLORIDE [Concomitant]
     Active Substance: AMBROXOL HYDROCHLORIDE
     Indication: Rhinitis
     Dosage: 5 MILLILITER, BID
     Route: 065
     Dates: start: 20180927, end: 20181002
  44. AMBROXOL HYDROCHLORIDE [Concomitant]
     Active Substance: AMBROXOL HYDROCHLORIDE
     Dosage: 5 MILLILITER, BID
     Route: 065
     Dates: start: 20181217, end: 20181220
  45. AMBROXOL HYDROCHLORIDE [Concomitant]
     Active Substance: AMBROXOL HYDROCHLORIDE
     Dosage: 5 MILLILITER, BID
     Route: 065
     Dates: start: 20190927, end: 20190930
  46. AMBROXOL HYDROCHLORIDE [Concomitant]
     Active Substance: AMBROXOL HYDROCHLORIDE
     Dosage: 5 MILLILITER, BID
     Route: 065
     Dates: start: 20210130, end: 20210202
  47. AMBROXOL HYDROCHLORIDE [Concomitant]
     Active Substance: AMBROXOL HYDROCHLORIDE
     Dosage: 5 MILLILITER, BID
     Route: 065
     Dates: start: 20210813, end: 20210819
  48. PANADOL [Concomitant]
     Active Substance: ACETAMINOPHEN
     Indication: Ear pain
     Dosage: 10 MILLILITER, BID
     Route: 065
     Dates: start: 20170411, end: 20170415
  49. PANADOL [Concomitant]
     Active Substance: ACETAMINOPHEN
     Indication: Pyrexia
     Dosage: 10 MILLILITER, BID
     Route: 065
     Dates: start: 20171219, end: 20171223
  50. PANADOL [Concomitant]
     Active Substance: ACETAMINOPHEN
     Indication: Oropharyngeal pain
     Dosage: 10 MILLILITER, BID
     Route: 065
     Dates: start: 20180209, end: 20180219
  51. PANADOL [Concomitant]
     Active Substance: ACETAMINOPHEN
     Dosage: 10 MILLILITER, BID
     Route: 065
     Dates: start: 20220315, end: 20220318
  52. PANADOL [Concomitant]
     Active Substance: ACETAMINOPHEN
     Dosage: 15 MILLILITER, BID
     Route: 065
     Dates: start: 20221006, end: 20221008
  53. EBASTINE [Concomitant]
     Active Substance: EBASTINE
     Indication: Nasal congestion
     Dosage: 2.5 MILLILITER, QD
     Route: 065
     Dates: start: 20170615, end: 20170617
  54. EBASTINE [Concomitant]
     Active Substance: EBASTINE
     Dosage: 2.5 MILLILITER, QD
     Route: 065
     Dates: start: 20170718, end: 20170724
  55. SMECTA [Concomitant]
     Active Substance: MONTMORILLONITE
     Indication: Diarrhoea
     Dosage: 3 GRAM, QD
     Route: 065
     Dates: start: 20170721, end: 20170725
  56. SMECTA [Concomitant]
     Active Substance: MONTMORILLONITE
     Dosage: 3 GRAM, QD
     Route: 065
     Dates: start: 20180209, end: 20180219
  57. SMECTA [Concomitant]
     Active Substance: MONTMORILLONITE
     Dosage: 2 DOSAGE FORM, QD
     Route: 065
     Dates: start: 20190212, end: 20190215
  58. LORDESTIN [Concomitant]
     Indication: Influenza
     Dosage: 5 MILLILITER, QD
     Route: 065
     Dates: start: 20171123, end: 20171203
  59. Cebion [Concomitant]
     Indication: Cough
     Dosage: 10 GTT DROPS, QD
     Route: 065
     Dates: start: 20180623, end: 20180628
  60. VITAMIN D [Concomitant]
     Active Substance: VITAMIN D NOS
     Indication: Ear pain
     Dosage: 2 GTT DROPS, QD
     Route: 065
     Dates: start: 20180927, end: 20181002
  61. VITAMIN D [Concomitant]
     Active Substance: VITAMIN D NOS
     Indication: Headache
     Dosage: 2 GTT DROPS, QD
     Route: 065
     Dates: start: 20201225, end: 20201227
  62. AMOXICILLIN\CLAVULANATE POTASSIUM [Concomitant]
     Active Substance: AMOXICILLIN\CLAVULANATE POTASSIUM
     Indication: Cystitis
     Dosage: 7.5 MILLILITER, BID
     Route: 065
     Dates: start: 20181013, end: 20181018
  63. FLOXAL [Concomitant]
     Active Substance: OFLOXACIN
     Indication: Conjunctivitis
     Dosage: 1 GTT DROPS
     Route: 065
     Dates: start: 20181227, end: 20181230
  64. COCCULINE [Concomitant]
     Indication: Vomiting
     Dosage: 1 DOSAGE FORM, BID
     Route: 065
     Dates: start: 20190212, end: 20190215
  65. Verrumal [Concomitant]
     Indication: Skin papilloma
     Dosage: 2 GTT DROPS, QD
     Route: 065
     Dates: start: 20200502, end: 20230516
  66. ANAFTIN [Concomitant]
     Indication: Gingivitis
     Dosage: UNK UNK, QD
     Route: 065
     Dates: start: 20200210, end: 20200217
  67. AZITHROMYCIN [Concomitant]
     Active Substance: AZITHROMYCIN
     Indication: Rhinitis
     Dosage: 7 MILLILITER, QD
     Route: 065
     Dates: start: 20210203, end: 20210205
  68. AZITHROMYCIN [Concomitant]
     Active Substance: AZITHROMYCIN
     Indication: Sinusitis
     Dosage: 7 MILLILITER, QD
     Route: 065
     Dates: start: 20210906, end: 20210912
  69. Vibrocil [Concomitant]
     Indication: Cough
     Dosage: UNK UNK, BID
     Route: 065
     Dates: start: 20210813, end: 20210819
  70. VITAMIN D3 [Concomitant]
     Active Substance: CHOLECALCIFEROL
     Indication: Cough
     Dosage: 2 GTT DROPS, BID
     Route: 065
     Dates: start: 20210813, end: 20210819
  71. DIETARY SUPPLEMENT\HERBALS [Concomitant]
     Active Substance: DIETARY SUPPLEMENT\HERBALS
     Indication: Sinusitis
     Dosage: 25 GTT DROPS, TID
     Route: 065
     Dates: start: 20210831, end: 20210912
  72. DIETARY SUPPLEMENT\HERBALS [Concomitant]
     Active Substance: DIETARY SUPPLEMENT\HERBALS
     Dosage: 25 GTT DROPS, TID
     Route: 065
     Dates: start: 20200722, end: 20200725
  73. CEFUROXIME [Concomitant]
     Active Substance: CEFUROXIME
     Indication: Cough
     Dosage: 1 DOSAGE FORM, BID
     Route: 065
     Dates: start: 20220316, end: 20220321
  74. AMBROXOL [Concomitant]
     Active Substance: AMBROXOL
     Indication: Cough
     Dosage: 5 MILLILITER, BID
     Route: 065
     Dates: start: 20220316, end: 20220321
  75. AZITHROMYCIN [Concomitant]
     Active Substance: AZITHROMYCIN
     Indication: Cough
     Dosage: 5 MILLILITER, BID
     Route: 065
     Dates: start: 20221130, end: 20221205
  76. AZITHROMYCIN [Concomitant]
     Active Substance: AZITHROMYCIN
     Indication: Oropharyngeal pain
     Dosage: 500 MILLIGRAM, QD
     Route: 065
     Dates: start: 20221219, end: 20221224
  77. PHENYLEPHRINE [Concomitant]
     Active Substance: PHENYLEPHRINE HYDROCHLORIDE
     Indication: Cough
     Dosage: UNK
     Route: 065
     Dates: start: 20221130, end: 20221211
  78. PHENYLEPHRINE [Concomitant]
     Active Substance: PHENYLEPHRINE HYDROCHLORIDE
     Indication: Oropharyngeal pain
     Dosage: UNK
     Route: 065
     Dates: start: 20221220, end: 20221224
  79. PANCRELIPASE [Concomitant]
     Active Substance: PANCRELIPASE
     Indication: Diarrhoea
     Dosage: 1 DOSAGE FORM, QD
     Route: 065
     Dates: start: 20230415, end: 20230418
  80. PINAVERIUM BROMIDE [Concomitant]
     Active Substance: PINAVERIUM BROMIDE
     Indication: Diarrhoea
     Dosage: 1 DOSAGE FORM, TID
     Route: 065
     Dates: start: 20230415, end: 20230418
  81. Enterol [Concomitant]
     Indication: Diarrhoea
     Dosage: 1 DOSAGE FORM, BID
     Route: 065
     Dates: start: 20230415, end: 20230418
  82. NIFUROXAZID [Concomitant]
     Indication: Diarrhoea
     Dosage: 5 MILLILITER, BID
     Route: 065
     Dates: start: 20230722, end: 20230723

REACTIONS (1)
  - Autism spectrum disorder [Not Recovered/Not Resolved]

NARRATIVE: CASE EVENT DATE: 20200801
